FAERS Safety Report 14433591 (Version 1)
Quarter: 2018Q1

REPORT INFORMATION
  Report Type: Spontaneous
  Country: CA (occurrence: CA)
  Receive Date: 20180124
  Receipt Date: 20180124
  Transmission Date: 20180509
  Serious: Yes (Other)
  Sender: FDA-Public Use
  Company Number: CA-GLAXOSMITHKLINE-CA2018GSK009816

PATIENT
  Sex: Male

DRUGS (1)
  1. LAMOTRIGINE. [Suspect]
     Active Substance: LAMOTRIGINE
     Indication: SEIZURE
     Route: 064

REACTIONS (8)
  - Foetal exposure during pregnancy [Unknown]
  - Ileal atresia [Recovering/Resolving]
  - Gastroschisis [Recovering/Resolving]
  - Intestinal atresia [Recovering/Resolving]
  - Intestinal prolapse [Recovering/Resolving]
  - Gastrointestinal necrosis [Recovering/Resolving]
  - Short-bowel syndrome [Recovering/Resolving]
  - Developmental delay [Recovering/Resolving]
